FAERS Safety Report 20878330 (Version 2)
Quarter: 2022Q3

REPORT INFORMATION
  Report Type: Spontaneous
  Country: JP (occurrence: JP)
  Receive Date: 20220526
  Receipt Date: 20220802
  Transmission Date: 20221027
  Serious: No
  Sender: FDA-Public Use
  Company Number: JP-GLAXOSMITHKLINE-JP2022JPN080675

PATIENT

DRUGS (8)
  1. SOTROVIMAB [Suspect]
     Active Substance: SOTROVIMAB
     Indication: COVID-19
     Dosage: 500 MG
     Route: 041
     Dates: start: 20220217, end: 20220217
  2. LEVOTHYROXINE SODIUM [Suspect]
     Active Substance: LEVOTHYROXINE SODIUM
     Indication: Basedow^s disease
     Dosage: 100 ?G/DAY
     Route: 048
     Dates: start: 20210507, end: 20211206
  3. LEVOTHYROXINE SODIUM [Suspect]
     Active Substance: LEVOTHYROXINE SODIUM
     Dosage: 112.5 ?G/DAY
     Route: 048
     Dates: start: 20211207
  4. CALCITRIOL [Suspect]
     Active Substance: CALCITRIOL
     Indication: Basedow^s disease
     Dosage: 1.0 ?G/DAY
     Route: 048
     Dates: start: 20210507, end: 20210906
  5. CALCITRIOL [Suspect]
     Active Substance: CALCITRIOL
     Dosage: 0.5 ?G
     Route: 048
     Dates: start: 20210907
  6. CALONAL [Suspect]
     Active Substance: ACETAMINOPHEN
     Indication: Headache
     Dosage: PRN
     Route: 048
     Dates: start: 20210507
  7. CALONAL [Suspect]
     Active Substance: ACETAMINOPHEN
     Indication: Arthralgia
  8. SODIUM FERROUS CITRATE [Suspect]
     Active Substance: SODIUM FERROUS CITRATE
     Indication: Anaemia
     Dosage: 100 MG/DAY
     Route: 048
     Dates: start: 20220401

REACTIONS (1)
  - Exposure during pregnancy [Unknown]
